FAERS Safety Report 7347013-8 (Version None)
Quarter: 2011Q1

REPORT INFORMATION
  Report Type: 
  Country: None (occurrence: None)
  Receive Date: 20110311
  Receipt Date: 20110301
  Transmission Date: 20110831
  Serious: Yes (Other)
  Sender: FDA-Public Use
  Company Number: PHFR2011GB01659

PATIENT
  Sex: Male

DRUGS (5)
  1. LESCOL [Suspect]
     Dosage: 20 MG, UNK
  2. LESCOL [Suspect]
     Dosage: 40 MG, UNK
  3. LESCOL [Suspect]
     Dosage: 20 MG, UNK
  4. Q10 [Concomitant]
  5. SIMVASTATIN [Concomitant]
     Dosage: UNK

REACTIONS (5)
  - ARTHRALGIA [None]
  - MYALGIA [None]
  - EXOSTOSIS [None]
  - PAIN IN EXTREMITY [None]
  - BACK PAIN [None]
